FAERS Safety Report 17107402 (Version 1)
Quarter: 2019Q4

REPORT INFORMATION
  Report Type: Spontaneous
  Country: US (occurrence: US)
  Receive Date: 20191203
  Receipt Date: 20191203
  Transmission Date: 20200122
  Serious: Yes (Hospitalization, Congenital Anomaly, Other)
  Sender: FDA-Public Use
  Company Number: US-INDIVIOR US-INDV-122609-2019

PATIENT
  Sex: Male
  Weight: 1.92 kg

DRUGS (3)
  1. BUPRENORPHINE. [Suspect]
     Active Substance: BUPRENORPHINE
     Indication: PRODUCT USED FOR UNKNOWN INDICATION
     Dosage: UNK
     Route: 064
  2. GABAPENTIN. [Suspect]
     Active Substance: GABAPENTIN
     Indication: PRODUCT USED FOR UNKNOWN INDICATION
     Dosage: UNK
     Route: 064
  3. NICOTINE. [Suspect]
     Active Substance: NICOTINE
     Indication: PRODUCT USED FOR UNKNOWN INDICATION
     Dosage: UNK
     Route: 064

REACTIONS (12)
  - Neonatal deafness [Unknown]
  - Congenital multiplex arthrogryposis [Unknown]
  - Blindness congenital [Unknown]
  - Foetal exposure during pregnancy [Recovered/Resolved]
  - Infantile vomiting [Unknown]
  - Premature baby [Recovered/Resolved]
  - Sepsis neonatal [Unknown]
  - Feeding intolerance [Unknown]
  - Hydronephrosis [Unknown]
  - Drug withdrawal syndrome neonatal [Unknown]
  - Gastrooesophageal reflux disease [Unknown]
  - Encephalopathy neonatal [Unknown]
